FAERS Safety Report 19682942 (Version 1)
Quarter: 2021Q3

REPORT INFORMATION
  Report Type: Spontaneous
  Country: US (occurrence: US)
  Receive Date: 20210811
  Receipt Date: 20210811
  Transmission Date: 20211014
  Serious: No
  Sender: FDA-Public Use
  Company Number: US-ALKEM LABORATORIES LIMITED-US-ALKEM-2021-00635

PATIENT
  Age: 13 Year
  Sex: Female

DRUGS (2)
  1. FLUOXETINE [Suspect]
     Active Substance: FLUOXETINE HYDROCHLORIDE
     Indication: PRODUCT USED FOR UNKNOWN INDICATION
     Dosage: UNK
     Route: 065
  2. LAMOTRIGINE. [Suspect]
     Active Substance: LAMOTRIGINE
     Indication: PRODUCT USED FOR UNKNOWN INDICATION
     Dosage: UNK
     Route: 065

REACTIONS (9)
  - Clonus [Recovering/Resolving]
  - Intentional overdose [Unknown]
  - Tremor [Recovering/Resolving]
  - Agitation [Recovering/Resolving]
  - Hyperreflexia [Recovering/Resolving]
  - Muscle rigidity [Recovering/Resolving]
  - Drug level increased [Recovering/Resolving]
  - Acidosis [Recovering/Resolving]
  - Hyperthermia [Recovering/Resolving]
